FAERS Safety Report 4431794-7 (Version None)
Quarter: 2004Q3

REPORT INFORMATION
  Report Type: 
  Country: None (occurrence: None)
  Receive Date: 20040818
  Receipt Date: 20040804
  Transmission Date: 20050211
  Serious: Yes (Hospitalization)
  Sender: FDA-Public Use
  Company Number: DSK-2004-05860

PATIENT
  Age: 67 Year
  Sex: Male

DRUGS (7)
  1. TARIVID OTIC SOLUTION (OFLOXACIN) [Suspect]
     Indication: EAR INFECTION
     Dosage: 2 U DROPS (1 DOSEAGE FORMS 2 N 1 D) AURICULAR (OTIC)
     Dates: start: 20010101, end: 20040201
  2. PREDNISONE TAB [Concomitant]
  3. CIFLOX (CIPROFLOXACIN) [Concomitant]
  4. AUGMENTIN [Concomitant]
  5. ORELOX (CEFEPODOXIME PROXETIL) [Concomitant]
  6. KENZEN (CANDESARTAN CILEXETIL) [Concomitant]
  7. OMEPRAZOLE [Concomitant]

REACTIONS (5)
  - BLOOD CREATINE PHOSPHOKINASE INCREASED [None]
  - MUSCLE CRAMP [None]
  - MYALGIA [None]
  - PAIN [None]
  - SELF-MEDICATION [None]
